FAERS Safety Report 17965382 (Version 1)
Quarter: 2020Q3

REPORT INFORMATION
  Report Type: Spontaneous
  Country: US (occurrence: US)
  Receive Date: 20200701
  Receipt Date: 20200701
  Transmission Date: 20201103
  Serious: No
  Sender: FDA-Public Use
  Company Number: US-AMGEN-USASP2019040266

PATIENT
  Sex: Female

DRUGS (2)
  1. PROCRIT [Suspect]
     Active Substance: ERYTHROPOIETIN
     Indication: PRODUCT USED FOR UNKNOWN INDICATION
     Dosage: 2000 UNIT, QWK
     Route: 065
  2. PROCRIT [Suspect]
     Active Substance: ERYTHROPOIETIN
     Dosage: UNK (40,000 UNIT/ML)
     Route: 065

REACTIONS (2)
  - Asthenia [Not Recovered/Not Resolved]
  - Blood count abnormal [Not Recovered/Not Resolved]
